FAERS Safety Report 11675600 (Version 7)
Quarter: 2018Q2

REPORT INFORMATION
  Report Type: Spontaneous
  Country: US (occurrence: US)
  Receive Date: 20151028
  Receipt Date: 20180622
  Transmission Date: 20180711
  Serious: Yes (Other)
  Sender: FDA-Public Use
  Company Number: US-PFIZER INC-2015360922

PATIENT
  Age: 57 Year
  Sex: Female
  Weight: 43 kg

DRUGS (8)
  1. PROVERA [Concomitant]
     Active Substance: MEDROXYPROGESTERONE ACETATE
     Indication: HORMONE REPLACEMENT THERAPY
     Dosage: 10 MG, CYCLIC (16-25, 5 DAYS OFF)
     Route: 048
  2. SEROQUEL [Concomitant]
     Active Substance: QUETIAPINE FUMARATE
     Dosage: UNK
     Dates: end: 2009
  3. FIORICET [Concomitant]
     Active Substance: ACETAMINOPHEN\BUTALBITAL\CAFFEINE
     Indication: MIGRAINE
     Dosage: 1 DF, AS NEEDED
  4. XANAX [Concomitant]
     Active Substance: ALPRAZOLAM
     Indication: BIPOLAR I DISORDER
     Dosage: 2 MG, 3-4 TIMES A DAY
     Route: 048
  5. PREMARIN [Suspect]
     Active Substance: ESTROGENS, CONJUGATED
     Indication: HORMONE REPLACEMENT THERAPY
     Dosage: 10 MG, CYCLIC (TO TAKE ON DAYS 1-25 AND THEN 5 DAYS OFF AFTER THAT)
     Route: 048
     Dates: start: 198603, end: 2009
  6. PREMARIN [Suspect]
     Active Substance: ESTROGENS, CONJUGATED
     Dosage: 10 MG, CYCLIC (TO TAKE ON DAYS 1-25 AND THEN 5 DAYS OFF AFTER THAT)
     Route: 048
     Dates: end: 2013
  7. PREMARIN [Suspect]
     Active Substance: ESTROGENS, CONJUGATED
     Dosage: 6.25 MG, DAILY (1.25 MG TABLET 5 TABLETS DAILY)
     Route: 048
     Dates: start: 20160115
  8. PREMARIN [Suspect]
     Active Substance: ESTROGENS, CONJUGATED
     Dosage: 1.5 MG, UNK
     Route: 048

REACTIONS (8)
  - Condition aggravated [Unknown]
  - Weight decreased [Unknown]
  - Neoplasm malignant [Unknown]
  - Decreased appetite [Unknown]
  - Bipolar I disorder [Unknown]
  - Fluid retention [Recovered/Resolved]
  - Intentional product misuse [Not Recovered/Not Resolved]
  - Breast hypoplasia [Not Recovered/Not Resolved]

NARRATIVE: CASE EVENT DATE: 2009
